FAERS Safety Report 4460837-X (Version None)
Quarter: 2004Q3

REPORT INFORMATION
  Report Type: 
  Country: None (occurrence: None)
  Receive Date: 20040928
  Receipt Date: 20011213
  Transmission Date: 20050211
  Serious: No
  Sender: FDA-Public Use
  Company Number: US-GLAXOSMITHKLINE-A0171813A

PATIENT
  Age: 76 Year
  Sex: Male
  Weight: 84.1 kg

DRUGS (5)
  1. ADVAIR DISKUS 100/50 [Suspect]
     Indication: ASTHMA
     Dosage: 1PUFF TWICE PER DAY
     Route: 055
     Dates: start: 20011001
  2. NEXIUM [Concomitant]
  3. FLOMAX [Concomitant]
  4. LIPITOR [Concomitant]
  5. ANTIHISTAMINE [Concomitant]

REACTIONS (1)
  - ORAL FUNGAL INFECTION [None]
